FAERS Safety Report 22229532 (Version 1)
Quarter: 2023Q2

REPORT INFORMATION
  Report Type: Spontaneous
  Country: FR (occurrence: FR)
  Receive Date: 20230419
  Receipt Date: 20230419
  Transmission Date: 20230722
  Serious: Yes (Life-Threatening, Hospitalization)
  Sender: FDA-Public Use
  Company Number: None

PATIENT
  Age: 76 Year
  Sex: Male
  Weight: 105 kg

DRUGS (2)
  1. OXYCONTIN [Suspect]
     Active Substance: OXYCODONE HYDROCHLORIDE
     Indication: Pain in extremity
     Dosage: 40 MILLIGRAM, Q12H (40MG MATIN ET SOIR / 40MG MORNING AND EVENING )
     Route: 048
     Dates: start: 20230321, end: 20230325
  2. OXYCODONE HYDROCHLORIDE [Suspect]
     Active Substance: OXYCODONE HYDROCHLORIDE
     Indication: Pain in extremity
     Dosage: 10 MILLIGRAM
     Route: 048
     Dates: start: 20230321, end: 20230325

REACTIONS (1)
  - Confusional state [Recovered/Resolved]

NARRATIVE: CASE EVENT DATE: 20230323
